FAERS Safety Report 6409687-5 (Version None)
Quarter: 2009Q4

REPORT INFORMATION
  Report Type: 
  Country: None (occurrence: None)
  Receive Date: 20091022
  Receipt Date: 20091012
  Transmission Date: 20100525
  Serious: Yes (Death, Life-Threatening)
  Sender: FDA-Public Use
  Company Number: CN-PFIZER INC-2009274459

PATIENT
  Age: 63 Year

DRUGS (4)
  1. SULPERAZON [Suspect]
     Indication: INFECTION
     Dosage: 2 G, 2X/DAY
     Route: 042
     Dates: start: 20090822
  2. LIPOVENOES [Concomitant]
  3. AMINO ACIDS [Concomitant]
  4. ALL OTHER THERAPEUTIC PRODUCTS [Concomitant]

REACTIONS (2)
  - ANAPHYLACTIC SHOCK [None]
  - HYPERSENSITIVITY [None]
